FAERS Safety Report 11723786 (Version 2)
Quarter: 2016Q3

REPORT INFORMATION
  Report Type: Spontaneous
  Country: US (occurrence: US)
  Receive Date: 20151111
  Receipt Date: 20160919
  Transmission Date: 20161109
  Serious: Yes (Other)
  Sender: FDA-Public Use
  Company Number: US-TEVA-608273USA

PATIENT
  Sex: Female

DRUGS (1)
  1. COPAXONE [Suspect]
     Active Substance: GLATIRAMER ACETATE
     Indication: MULTIPLE SCLEROSIS
     Dosage: DOSE AND FREQUENCY NOT PROVIDED
     Route: 065

REACTIONS (8)
  - Muscle spasms [Unknown]
  - Pain [Unknown]
  - Secondary progressive multiple sclerosis [Unknown]
  - Product use issue [Unknown]
  - Multiple sclerosis [Unknown]
  - Vomiting [Unknown]
  - Adverse event [Unknown]
  - Treatment failure [Unknown]
